FAERS Safety Report 26019337 (Version 1)
Quarter: 2025Q4

REPORT INFORMATION
  Report Type: Spontaneous
  Country: GB (occurrence: GB)
  Receive Date: 20251110
  Receipt Date: 20251110
  Transmission Date: 20260117
  Serious: Yes (Disabling)
  Sender: CIPLA
  Company Number: GB-MHRA-MED-202510291107417220-VMTFL

PATIENT

DRUGS (2)
  1. FINASTERIDE [Suspect]
     Active Substance: FINASTERIDE
     Indication: Alopecia
     Dosage: 1 MILLIGRAM
     Route: 065
     Dates: start: 20200701, end: 20241001
  2. DUTASTERIDE [Suspect]
     Active Substance: DUTASTERIDE
     Indication: Alopecia
     Dosage: 1 MILLIGRAM, QD (1MG PER DAY)
     Route: 065
     Dates: start: 20241001, end: 20251001

REACTIONS (4)
  - Disturbance in attention [Not Recovered/Not Resolved]
  - Fatigue [Not Recovered/Not Resolved]
  - Ejaculation disorder [Not Recovered/Not Resolved]
  - Breast tenderness [Not Recovered/Not Resolved]
